FAERS Safety Report 4538323-8 (Version None)
Quarter: 2004Q4

REPORT INFORMATION
  Report Type: 
  Country: None (occurrence: None)
  Receive Date: 20041227
  Receipt Date: 20041221
  Transmission Date: 20050328
  Serious: Yes (Hospitalization)
  Sender: FDA-Public Use
  Company Number: US-BRISTOL-MYERS SQUIBB COMPANY-12802575

PATIENT
  Age: 76 Year
  Sex: Male

DRUGS (6)
  1. CYCLOPHOSPHAMIDE [Suspect]
     Route: 042
     Dates: start: 20041008, end: 20041008
  2. DOXORUBICIN HCL [Suspect]
     Route: 042
     Dates: start: 20041008, end: 20041008
  3. VINCRISTINE SULFATE [Suspect]
     Route: 042
     Dates: start: 20041008, end: 20041008
  4. PEGFILGRASTIM [Suspect]
     Indication: CHEMOTHERAPY
     Route: 058
     Dates: start: 20041008, end: 20041008
  5. RITUXIMAB [Suspect]
     Route: 042
     Dates: start: 20041008, end: 20041008
  6. PREDNISONE [Suspect]
     Route: 048
     Dates: start: 20041008, end: 20041008

REACTIONS (1)
  - ACUTE MYOCARDIAL INFARCTION [None]
